FAERS Safety Report 16009192 (Version 1)
Quarter: 2019Q1

REPORT INFORMATION
  Report Type: Report from Study
  Country: None (occurrence: BR)
  Receive Date: 20190224
  Receipt Date: 20190224
  Transmission Date: 20190418
  Serious: Yes (Disabling)
  Sender: FDA-Public Use
  Company Number: BR-ABBVIE-19K-020-2674778-00

PATIENT
  Sex: Female

DRUGS (1)
  1. HUMIRA [Suspect]
     Active Substance: ADALIMUMAB
     Indication: ANKYLOSING SPONDYLITIS
     Route: 058
     Dates: start: 20181214

REACTIONS (5)
  - Vomiting [Unknown]
  - Back pain [Unknown]
  - Bedridden [Unknown]
  - Diarrhoea [Unknown]
  - Constipation [Unknown]
